FAERS Safety Report 8970686 (Version 1)
Quarter: 2012Q4

REPORT INFORMATION
  Report Type: 
  Country: US (occurrence: US)
  Receive Date: 20121218
  Receipt Date: 20121218
  Transmission Date: 20130627
  Serious: Yes (Life-Threatening)
  Sender: FDA-Public Use
  Company Number: US-BRISTOL-MYERS SQUIBB COMPANY-16509168

PATIENT
  Age: 86 Year
  Sex: Female
  Weight: 73.47 kg

DRUGS (3)
  1. ABILIFY [Suspect]
     Indication: BIPOLAR DISORDER
     Dosage: Interrupt on Nov2011
  2. ASPIRIN [Concomitant]
  3. VITAMIN [Concomitant]

REACTIONS (3)
  - Suicidal ideation [Unknown]
  - Musculoskeletal stiffness [Unknown]
  - Drug ineffective [Unknown]
